FAERS Safety Report 7596212-9 (Version None)
Quarter: 2011Q3

REPORT INFORMATION
  Report Type: 
  Country: None (occurrence: None)
  Receive Date: 20110707
  Receipt Date: 20110628
  Transmission Date: 20111222
  Serious: Yes (Other)
  Sender: FDA-Public Use
  Company Number: US-ELI_LILLY_AND_COMPANY-US201106008623

PATIENT
  Sex: Male

DRUGS (2)
  1. EFFIENT [Suspect]
     Indication: CORONARY ARTERIAL STENT INSERTION
     Dosage: 10 MG, UNKNOWN
  2. ASPIRIN [Concomitant]
     Dosage: 325 MG, UNKNOWN
     Route: 065

REACTIONS (1)
  - THROMBOSIS [None]
